FAERS Safety Report 19473974 (Version 1)
Quarter: 2021Q2

REPORT INFORMATION
  Report Type: Spontaneous
  Country: US (occurrence: US)
  Receive Date: 20210629
  Receipt Date: 20210629
  Transmission Date: 20210717
  Serious: No
  Sender: FDA-Public Use
  Company Number: US-BEH-2021133457

PATIENT
  Age: 58 Year
  Sex: Male

DRUGS (3)
  1. HIZENTRA [Suspect]
     Active Substance: HUMAN IMMUNOGLOBULIN G
     Indication: CHRONIC INFLAMMATORY DEMYELINATING POLYRADICULONEUROPATHY
     Dosage: 19 GRAM (95MKL), BIW
     Route: 065
     Dates: start: 20181113
  2. BUPROPION. [Concomitant]
     Active Substance: BUPROPION
  3. TRAZODONE [Concomitant]
     Active Substance: TRAZODONE HYDROCHLORIDE

REACTIONS (2)
  - Infusion site extravasation [Not Recovered/Not Resolved]
  - Infusion site urticaria [Not Recovered/Not Resolved]
